FAERS Safety Report 4289485-1 (Version None)
Quarter: 2004Q1

REPORT INFORMATION
  Report Type: 
  Country: None (occurrence: None)
  Receive Date: 20040121
  Receipt Date: 20031126
  Transmission Date: 20041129
  Serious: Yes (Hospitalization)
  Sender: FDA-Public Use
  Company Number: 30017265-C572768-1

PATIENT
  Age: 67 Year
  Sex: Male

DRUGS (18)
  1. EXTRANEAL [Suspect]
     Indication: PERITONEAL DIALYSIS
     Dosage: 7.5% ICODEXTRIN 2.5L QD IP
     Route: 033
     Dates: start: 20020101
  2. DIANEAL [Concomitant]
  3. CARDURA [Concomitant]
  4. SYNTHYROID [Concomitant]
  5. ROCALTROL [Concomitant]
  6. FOLIC ACID [Concomitant]
  7. NEPHROVITE [Concomitant]
  8. VIT E [Concomitant]
  9. LIPITOR [Concomitant]
  10. PHOSLO II [Concomitant]
  11. RENAGEL [Concomitant]
  12. COUMADIN [Concomitant]
  13. TOPROL-XL [Concomitant]
  14. DOSS [Concomitant]
  15. LANOXIN [Concomitant]
  16. CARNITOR [Concomitant]
  17. PROTON PUMP INHIBITOR [Concomitant]
  18. QUININE [Concomitant]

REACTIONS (2)
  - HYPERGLYCAEMIA [None]
  - HYPERVOLAEMIA [None]
